FAERS Safety Report 7356061-3 (Version None)
Quarter: 2011Q1

REPORT INFORMATION
  Report Type: 
  Country: None (occurrence: None)
  Receive Date: 20110316
  Receipt Date: 20110309
  Transmission Date: 20110831
  Serious: Yes (Hospitalization)
  Sender: FDA-Public Use
  Company Number: CA-ELI_LILLY_AND_COMPANY-CA201103003112

PATIENT
  Age: 29 Year
  Sex: Male

DRUGS (1)
  1. ZYPREXA ZYDIS [Suspect]
     Dosage: 40 MG, DAILY (1/D)
     Dates: start: 20100101

REACTIONS (3)
  - HOSPITALISATION [None]
  - OVERDOSE [None]
  - MUSCULOSKELETAL PAIN [None]
